FAERS Safety Report 18115672 (Version 2)
Quarter: 2020Q3

REPORT INFORMATION
  Report Type: Spontaneous
  Country: IE (occurrence: IE)
  Receive Date: 20200805
  Receipt Date: 20200813
  Transmission Date: 20201103
  Serious: Yes (Other)
  Sender: FDA-Public Use
  Company Number: IE-MYLANLABS-2020M1068727

PATIENT
  Sex: Female

DRUGS (9)
  1. SULPIRIDE [Concomitant]
     Active Substance: SULPIRIDE
     Indication: SCHIZOAFFECTIVE DISORDER
     Dosage: UNK
     Route: 065
  2. BUSPIRONE [Concomitant]
     Active Substance: BUSPIRONE HYDROCHLORIDE
     Indication: SCHIZOAFFECTIVE DISORDER
     Dosage: UNK
     Route: 065
  3. DOSULEPIN HYDROCHLORIDE [Concomitant]
     Active Substance: DOTHIEPIN HYDROCHLORIDE
     Indication: SCHIZOAFFECTIVE DISORDER
     Dosage: 150 MILLIGRAM, HS (NOCTE)
     Route: 065
  4. OLANZAPINE. [Suspect]
     Active Substance: OLANZAPINE
     Indication: SCHIZOAFFECTIVE DISORDER
     Dosage: 25 MILLIGRAM, HS (NOCTE) (RESTART)
     Route: 065
  5. PIMOZIDE. [Concomitant]
     Active Substance: PIMOZIDE
     Indication: SCHIZOAFFECTIVE DISORDER
     Dosage: UNK
     Route: 065
  6. LOFEPRAMINE [Concomitant]
     Active Substance: LOFEPRAMINE
     Indication: SCHIZOAFFECTIVE DISORDER
     Dosage: UNK
     Route: 065
  7. FLUPENTHIXOL                       /00109703/ [Suspect]
     Active Substance: FLUPENTIXOL DECANOATE
     Indication: SCHIZOAFFECTIVE DISORDER
     Dosage: 40 MILLIGRAM, Q2W
     Route: 030
     Dates: end: 201409
  8. OLANZAPINE. [Suspect]
     Active Substance: OLANZAPINE
     Dosage: 20 MILLIGRAM, HS (NOCTE)
     Route: 065
     Dates: end: 201409
  9. TRIFLUOPERAZINE [Concomitant]
     Active Substance: TRIFLUOPERAZINE HYDROCHLORIDE
     Indication: SCHIZOAFFECTIVE DISORDER
     Dosage: UNK
     Route: 065

REACTIONS (7)
  - Dystonia [Unknown]
  - Symptom recurrence [Recovered/Resolved]
  - Social avoidant behaviour [Recovered/Resolved]
  - Therapy non-responder [Unknown]
  - Parkinsonism [Unknown]
  - Persecutory delusion [Recovered/Resolved]
  - Condition aggravated [Recovered/Resolved]
